FAERS Safety Report 4857973-2 (Version None)
Quarter: 2005Q4

REPORT INFORMATION
  Report Type: 
  Country: None (occurrence: None)
  Receive Date: 20051219
  Receipt Date: 20050425
  Transmission Date: 20060501
  Serious: No
  Sender: FDA-Public Use
  Company Number: US-GLAXOSMITHKLINE-A0555551A

PATIENT
  Age: 53 Year

DRUGS (2)
  1. NICODERM CQ [Suspect]
  2. ITCH-X [Concomitant]

REACTIONS (1)
  - APPLICATION SITE ERYTHEMA [None]
